FAERS Safety Report 20879652 (Version 1)
Quarter: 2022Q2

REPORT INFORMATION
  Report Type: Spontaneous
  Country: US (occurrence: US)
  Receive Date: 20220526
  Receipt Date: 20220526
  Transmission Date: 20220721
  Serious: No
  Sender: FDA-Public Use
  Company Number: US-RADIUS HEALTH INC.-2021US004959

PATIENT
  Sex: Female

DRUGS (7)
  1. TYMLOS [Suspect]
     Active Substance: ABALOPARATIDE
     Indication: Osteoporosis
     Dosage: 80 MCG, QD
     Route: 058
     Dates: start: 202102
  2. IBUPROFEN [Concomitant]
     Active Substance: IBUPROFEN
     Indication: Swelling
  3. IBUPROFEN [Concomitant]
     Active Substance: IBUPROFEN
     Indication: Arthralgia
  4. IBUPROFEN [Concomitant]
     Active Substance: IBUPROFEN
     Indication: Joint stiffness
  5. ALEVE [Concomitant]
     Active Substance: NAPROXEN SODIUM
     Indication: Swelling
  6. ALEVE [Concomitant]
     Active Substance: NAPROXEN SODIUM
     Indication: Arthralgia
  7. ALEVE [Concomitant]
     Active Substance: NAPROXEN SODIUM
     Indication: Joint stiffness

REACTIONS (1)
  - Therapeutic response unexpected [Unknown]
